FAERS Safety Report 14576667 (Version 2)
Quarter: 2018Q1

REPORT INFORMATION
  Report Type: Spontaneous
  Country: US (occurrence: US)
  Receive Date: 20180227
  Receipt Date: 20180302
  Transmission Date: 20180509
  Serious: No
  Sender: FDA-Public Use
  Company Number: US-PFIZER INC-2018080827

PATIENT
  Age: 72 Year
  Sex: Female

DRUGS (1)
  1. METHOTREXATE SODIUM. [Suspect]
     Active Substance: METHOTREXATE SODIUM
     Indication: ARTHRITIS
     Dosage: UNK UNK, WEEKLY (.80)
     Dates: start: 2016, end: 2017

REACTIONS (2)
  - Drug ineffective [Unknown]
  - Gout [Unknown]

NARRATIVE: CASE EVENT DATE: 2016
